FAERS Safety Report 4612862-3 (Version None)
Quarter: 2005Q1

REPORT INFORMATION
  Report Type: 
  Country: None (occurrence: None)
  Receive Date: 20050318
  Receipt Date: 20041115
  Transmission Date: 20050727
  Serious: Yes (Death, Hospitalization, Other)
  Sender: FDA-Public Use
  Company Number: US-MERCK-0411USA02482

PATIENT
  Age: 87 Year
  Sex: Female

DRUGS (5)
  1. VIOXX [Suspect]
     Indication: ARTHRITIS
     Route: 048
     Dates: start: 20000101, end: 20030409
  2. SYNTHROID [Concomitant]
     Route: 065
  3. PLAVIX [Concomitant]
     Route: 065
  4. PREVACID [Concomitant]
     Route: 065
  5. LOTREL [Concomitant]
     Route: 065

REACTIONS (9)
  - ADVERSE DRUG REACTION [None]
  - ANAEMIA [None]
  - BLOOD CHOLESTEROL INCREASED [None]
  - CEREBROVASCULAR ACCIDENT [None]
  - HAEMORRHAGIC STROKE [None]
  - HEMIANOPIA [None]
  - MUSCLE SPASMS [None]
  - OEDEMA PERIPHERAL [None]
  - POLLAKIURIA [None]
